FAERS Safety Report 6420658-5 (Version None)
Quarter: 2009Q4

REPORT INFORMATION
  Report Type: 
  Country: None (occurrence: None)
  Receive Date: 20091027
  Receipt Date: 20091015
  Transmission Date: 20100525
  Serious: Yes (Death, Hospitalization)
  Sender: FDA-Public Use
  Company Number: 89284

PATIENT
  Age: 50 Year
  Sex: Male

DRUGS (1)
  1. LEUCOVORIN CALCIUM [Suspect]
     Indication: METASTATIC NEOPLASM
     Dosage: IV
     Route: 042

REACTIONS (9)
  - BLOOD PRESSURE IMMEASURABLE [None]
  - FAECAL INCONTINENCE [None]
  - HOSPITALISATION [None]
  - HYPERHIDROSIS [None]
  - HYPERSENSITIVITY [None]
  - LOSS OF CONSCIOUSNESS [None]
  - THROAT IRRITATION [None]
  - UNRESPONSIVE TO STIMULI [None]
  - URINARY INCONTINENCE [None]
